FAERS Safety Report 7524478-X (Version None)
Quarter: 2011Q2

REPORT INFORMATION
  Report Type: 
  Country: None (occurrence: None)
  Receive Date: 20110606
  Receipt Date: 20110504
  Transmission Date: 20111010
  Serious: Yes (Other)
  Sender: FDA-Public Use
  Company Number: US-BAYER-201022985NA

PATIENT
  Age: 43 Year
  Sex: Female
  Weight: 66 kg

DRUGS (14)
  1. ALLEGRA [Concomitant]
     Dosage: 180 MG, QD
  2. YASMIN [Suspect]
     Indication: MENSTRUAL CYCLE MANAGEMENT
     Dosage: UNK
     Route: 048
     Dates: start: 20040101
  3. YASMIN [Suspect]
     Indication: PREMENSTRUAL SYNDROME
  4. YAZ [Suspect]
     Indication: PRODUCT USED FOR UNKNOWN INDICATION
  5. LIDEX [Concomitant]
     Dosage: 0.5 %, UNK
  6. DROSPIRENONE AND ETHINYL ESTRADIOL [Suspect]
     Indication: MENSTRUAL CYCLE MANAGEMENT
  7. DROSPIRENONE AND ETHINYL ESTRADIOL [Suspect]
     Indication: PREMENSTRUAL SYNDROME
  8. SPORANOX [Concomitant]
     Dosage: 400 MG, BID
  9. PROVERA [Concomitant]
     Dosage: 10 MG, QD
     Dates: start: 20040801
  10. ZYRTEC [Concomitant]
     Dosage: 10 MG, QD
  11. TAGAMET [Concomitant]
     Dosage: 400 MG, QD
  12. ZOLOFT [Concomitant]
     Dosage: 100 MG, QD
  13. YASMIN [Suspect]
     Indication: UTERINE LEIOMYOMA
  14. ANAPROX DS [Concomitant]
     Dosage: 550 MG, BID

REACTIONS (5)
  - CHOLELITHIASIS [None]
  - HYPERLIPIDAEMIA [None]
  - ABDOMINAL PAIN UPPER [None]
  - PAIN [None]
  - CHOLECYSTITIS CHRONIC [None]
